FAERS Safety Report 25029215 (Version 1)
Quarter: 2025Q1

REPORT INFORMATION
  Report Type: Spontaneous
  Country: ZA (occurrence: ZA)
  Receive Date: 20250303
  Receipt Date: 20250303
  Transmission Date: 20250409
  Serious: Yes (Hospitalization)
  Sender: ABBVIE
  Company Number: ZA-ABBOTT-2024A-1381754

PATIENT
  Age: 73 Year
  Sex: Male

DRUGS (23)
  1. FENOFIBRATE [Suspect]
     Active Substance: FENOFIBRATE
     Indication: Blood cholesterol abnormal
     Dosage: 1 DOSAGE FORM?TAKE ONE CAPSULE DAILY
     Route: 048
  2. CARBOXYMETHYLCELLULOSE SODIUM\GLYCERIN [Concomitant]
     Active Substance: CARBOXYMETHYLCELLULOSE SODIUM\GLYCERIN
     Indication: Product used for unknown indication
     Route: 047
  3. LERCANIDIPINE HYDROCHLORIDE [Concomitant]
     Active Substance: LERCANIDIPINE HYDROCHLORIDE
     Indication: Hypertension
     Route: 048
  4. Spersallerg [Concomitant]
     Indication: Product used for unknown indication
     Route: 047
  5. Nazene [Concomitant]
     Indication: Product used for unknown indication
     Route: 045
  6. ASPIRIN\CLOPIDOGREL BISULFATE [Concomitant]
     Active Substance: ASPIRIN\CLOPIDOGREL BISULFATE
     Indication: Blood disorder
     Route: 048
  7. A lennon vitamin b complex [Concomitant]
     Indication: Product used for unknown indication
     Route: 058
  8. BISOPROLOL FUMARATE [Concomitant]
     Active Substance: BISOPROLOL FUMARATE
     Indication: Hypertension
     Dosage: 5 MG TAKE ONE TABLET DAILY
     Route: 048
  9. ACETAMINOPHEN\IBUPROFEN [Concomitant]
     Active Substance: ACETAMINOPHEN\IBUPROFEN
     Indication: Product used for unknown indication
     Route: 048
  10. Allergex [Concomitant]
     Indication: Hypersensitivity
     Route: 048
  11. COLCHICINE [Concomitant]
     Active Substance: COLCHICINE
     Indication: Product used for unknown indication
     Route: 048
  12. Pynstop [Concomitant]
     Indication: Product used for unknown indication
     Route: 048
  13. NORFLEX [Concomitant]
     Active Substance: ORPHENADRINE CITRATE
     Indication: Product used for unknown indication
     Route: 048
  14. AMIODARONE [Concomitant]
     Active Substance: AMIODARONE
     Indication: Cardiac disorder
     Dosage: 100 MG TAKE ONE TABLET DAILY
     Route: 048
  15. SYNALAR [Concomitant]
     Active Substance: FLUOCINOLONE ACETONIDE
     Indication: Product used for unknown indication
     Route: 048
  16. Nystacid [Concomitant]
     Indication: Product used for unknown indication
     Route: 048
  17. BISOPROLOL FUMARATE [Concomitant]
     Active Substance: BISOPROLOL FUMARATE
     Indication: Hypertension
     Dosage: 5 MG TAKE ONE TABLET DAILY
     Route: 048
  18. Omiflux [Concomitant]
     Indication: Ulcer
     Route: 048
  19. Colcine [Concomitant]
     Indication: Product used for unknown indication
     Route: 048
  20. LERCANIDIPINE [Concomitant]
     Active Substance: LERCANIDIPINE
     Indication: Hypertension
     Dosage: 20 MG TAKE ONE TABLET DAILY
     Route: 048
  21. ACETAMINOPHEN\ORPHENADRINE CITRATE [Concomitant]
     Active Substance: ACETAMINOPHEN\ORPHENADRINE CITRATE
     Indication: Product used for unknown indication
     Route: 048
  22. BISOPROLOL [Concomitant]
     Active Substance: BISOPROLOL
     Indication: Hypertension
     Route: 048
  23. BISOPROLOL [Concomitant]
     Active Substance: BISOPROLOL
     Indication: Hypertension
     Dosage: 2.5 MG DIRECTIONS TAKE ONE TABLET DAILY
     Route: 048

REACTIONS (2)
  - Cardiac disorder [Unknown]
  - Hospitalisation [Unknown]

NARRATIVE: CASE EVENT DATE: 20240101
